FAERS Safety Report 9530999 (Version 1)
Quarter: 2013Q3

REPORT INFORMATION
  Report Type: Spontaneous
  Country: US (occurrence: None)
  Receive Date: 20130916
  Receipt Date: 20130916
  Transmission Date: 20140515
  Serious: Yes (Life-Threatening, Hospitalization)
  Sender: FDA-Public Use
  Company Number: None

PATIENT
  Age: 58 Year
  Sex: Male
  Weight: 113.4 kg

DRUGS (2)
  1. XARELTO [Suspect]
     Indication: HIP SURGERY
     Dosage: 1 TABLET QD ORAL
     Route: 048
     Dates: start: 20130910, end: 20130911
  2. XARELTO [Suspect]
     Dosage: 1 TABLET, BID, ORAL
     Route: 048
     Dates: start: 20130911

REACTIONS (1)
  - Pulmonary embolism [None]
